FAERS Safety Report 17103959 (Version 2)
Quarter: 2019Q4

REPORT INFORMATION
  Report Type: Spontaneous
  Country: US (occurrence: US)
  Receive Date: 20191203
  Receipt Date: 20191220
  Transmission Date: 20200122
  Serious: Yes (Other)
  Sender: FDA-Public Use
  Company Number: US-BIOGEN-2019BI00792226

PATIENT
  Sex: Male

DRUGS (5)
  1. TECFIDERA [Suspect]
     Active Substance: DIMETHYL FUMARATE
     Dosage: MAINTENANCE DOSE
     Route: 048
     Dates: start: 20190916, end: 20191117
  2. TECFIDERA [Suspect]
     Active Substance: DIMETHYL FUMARATE
     Dosage: MAINTENANCE DOSE
     Route: 065
     Dates: start: 20191121
  3. TECFIDERA [Suspect]
     Active Substance: DIMETHYL FUMARATE
     Dosage: MAINTENANCE DOSE
     Route: 065
  4. TECFIDERA [Suspect]
     Active Substance: DIMETHYL FUMARATE
     Indication: MULTIPLE SCLEROSIS
     Dosage: STARTING DOSE
     Route: 048
  5. TECFIDERA [Suspect]
     Active Substance: DIMETHYL FUMARATE
     Route: 065

REACTIONS (22)
  - Viral infection [Unknown]
  - Weight increased [Unknown]
  - Cough [Unknown]
  - Paraesthesia [Unknown]
  - Blood pressure increased [Unknown]
  - Nausea [Unknown]
  - Pulmonary oedema [Unknown]
  - Intentional product use issue [Unknown]
  - Aphasia [Unknown]
  - Oropharyngeal discomfort [Unknown]
  - Respiratory disorder [Unknown]
  - Hot flush [Unknown]
  - Dyspnoea [Not Recovered/Not Resolved]
  - Memory impairment [Unknown]
  - Increased appetite [Unknown]
  - Musculoskeletal disorder [Unknown]
  - Hypoaesthesia [Unknown]
  - Injury [Unknown]
  - Fall [Recovered/Resolved]
  - Mobility decreased [Unknown]
  - Sinusitis [Unknown]
  - Flushing [Unknown]
